FAERS Safety Report 9238537 (Version 1)
Quarter: 2013Q2

REPORT INFORMATION
  Report Type: Spontaneous
  Country: US (occurrence: None)
  Receive Date: 20130417
  Receipt Date: 20130417
  Transmission Date: 20140414
  Serious: Yes (Other)
  Sender: FDA-Public Use
  Company Number: None

PATIENT
  Age: 88 Year
  Sex: Female
  Weight: 70.31 kg

DRUGS (1)
  1. LEOVOFLOXACIN [Suspect]
     Route: 042

REACTIONS (4)
  - Palpitations [None]
  - Pharyngeal oedema [None]
  - Swelling [None]
  - Blood sodium abnormal [None]
